FAERS Safety Report 21936450 (Version 1)
Quarter: 2023Q1

REPORT INFORMATION
  Report Type: Report from Study
  Country: US (occurrence: US)
  Receive Date: 20230201
  Receipt Date: 20230201
  Transmission Date: 20230418
  Serious: Yes (Other)
  Sender: FDA-Public Use
  Company Number: US-INCYTE CORPORATION-2020IN011276

PATIENT

DRUGS (4)
  1. PEMIGATINIB [Suspect]
     Active Substance: PEMIGATINIB
     Indication: Cholangiocarcinoma
     Dosage: 13.5 MILLIGRAM, QAM W/ FOOD X 14 DAYS, THEN 7 DAYS OFF
     Route: 065
     Dates: start: 20201027
  2. PEMIGATINIB [Suspect]
     Active Substance: PEMIGATINIB
     Dosage: 13.5 MILLIGRAM, QAM W/ FOOD X 14 DAYS, THEN 7 DAYS OFF
     Route: 065
     Dates: start: 20201028
  3. PEMIGATINIB [Suspect]
     Active Substance: PEMIGATINIB
     Dosage: 13.5 MILLIGRAM
     Route: 048
     Dates: start: 20201022
  4. PEMIGATINIB [Suspect]
     Active Substance: PEMIGATINIB
     Dosage: TAKE 1 QD ON DAYS 1-14 EVERY 21 DAYS
     Route: 048

REACTIONS (7)
  - Neuropathy peripheral [Unknown]
  - Blood uric acid increased [Unknown]
  - Diarrhoea [Unknown]
  - Dry mouth [Unknown]
  - Dysgeusia [Unknown]
  - Onycholysis [Unknown]
  - Fatigue [Unknown]

NARRATIVE: CASE EVENT DATE: 20210203
